FAERS Safety Report 7190019-2 (Version None)
Quarter: 2010Q4

REPORT INFORMATION
  Report Type: 
  Country: None (occurrence: None)
  Receive Date: 20101210
  Receipt Date: 20101202
  Transmission Date: 20110411
  Serious: Yes (Death)
  Sender: FDA-Public Use
  Company Number: 2010120008

PATIENT
  Age: 48 Year
  Sex: Male
  Weight: 54.8852 kg

DRUGS (12)
  1. ONSOLIS [Suspect]
     Indication: CANCER PAIN
     Dosage: (200 MCG UP TO 4 TIMES DAILY), BU
     Route: 002
     Dates: start: 20101026
  2. PERCOCET (OXYCODONE ACETAMINOPHEN, ACETAMINOPHEN) [Concomitant]
  3. FENTANYL-100 [Concomitant]
  4. MS CONTIN [Concomitant]
  5. LEXAPRO 9ESCITALOPRAM OXALATE) [Concomitant]
  6. DOXEPIN HCL [Concomitant]
  7. FLEXERIL [Concomitant]
  8. DIPHENHYDRAMINE HCL [Concomitant]
  9. RESTORIL (CYCLOBENZAPRINE) [Concomitant]
  10. DEXAMETHASONE [Concomitant]
  11. CIMETIDINE [Concomitant]
  12. VITAMIN D [Concomitant]

REACTIONS (1)
  - DEATH [None]
